FAERS Safety Report 14365926 (Version 3)
Quarter: 2019Q4

REPORT INFORMATION
  Report Type: Report from Study
  Country: US (occurrence: US)
  Receive Date: 20180109
  Receipt Date: 20191125
  Transmission Date: 20200122
  Serious: Yes (Other)
  Sender: FDA-Public Use
  Company Number: US-CIPLA LTD.-2017US30429

PATIENT

DRUGS (1)
  1. TOPIRAMATE. [Suspect]
     Active Substance: TOPIRAMATE
     Indication: MIGRAINE PROPHYLAXIS
     Dosage: UNK, 50-100 MG/DAY ADMINISTERED UP TO WEEK 36
     Route: 065

REACTIONS (16)
  - Migraine [Unknown]
  - Neck pain [Unknown]
  - Vision blurred [Unknown]
  - Nephrolithiasis [Unknown]
  - Sinusitis [Unknown]
  - Drug ineffective [Unknown]
  - Treatment noncompliance [Not Recovered/Not Resolved]
  - Dizziness [Unknown]
  - Adverse event [Unknown]
  - Decreased appetite [Unknown]
  - Disturbance in attention [Unknown]
  - Paraesthesia [Unknown]
  - Nausea [Unknown]
  - Fatigue [Unknown]
  - Cognitive disorder [Unknown]
  - Depression [Unknown]
